FAERS Safety Report 5926344-X (Version None)
Quarter: 2008Q4

REPORT INFORMATION
  Report Type: 
  Country: None (occurrence: None)
  Receive Date: 20081017
  Receipt Date: 20081006
  Transmission Date: 20090506
  Serious: Yes (Hospitalization)
  Sender: FDA-Public Use
  Company Number: S07-ESP-06039-01

PATIENT
  Age: 76 Year
  Sex: Male

DRUGS (8)
  1. MEMANTINE HCL [Suspect]
     Indication: COGNITIVE DISORDER
     Dosage: ORAL
     Route: 048
     Dates: end: 20070321
  2. ARICEPT [Suspect]
     Indication: COGNITIVE DISORDER
     Dosage: ORAL
     Route: 048
     Dates: end: 20070321
  3. AMOXICILLIN [Suspect]
     Dosage: 3000 MG (3000 MG, 1 IN 1 D), INTRAVENOUS
     Route: 042
     Dates: start: 20070311, end: 20070313
  4. SINEMET [Concomitant]
  5. DOBUPAL (VENLAFAXINE HYDROCHLORIDE) (VENLAFAXINE HYDROCHLORIDE) [Concomitant]
  6. PROSCAR (FINASTERIDE) (FINASTERIDE) [Concomitant]
  7. DAFLON (DIOSMIN) (DIOSMIN) [Concomitant]
  8. CLORAZEPATE DIPOTASSIUM [Concomitant]

REACTIONS (5)
  - CHOLESTASIS [None]
  - CYTOLYTIC HEPATITIS [None]
  - HEPATOTOXICITY [None]
  - RASH [None]
  - RESPIRATORY TRACT INFECTION [None]
